FAERS Safety Report 5780857-2 (Version None)
Quarter: 2008Q2

REPORT INFORMATION
  Report Type: 
  Country: None (occurrence: None)
  Receive Date: 20080620
  Receipt Date: 20080611
  Transmission Date: 20081010
  Serious: Yes (Hospitalization)
  Sender: FDA-Public Use
  Company Number: JP-PFIZER INC-2008024433

PATIENT
  Age: 65 Year
  Sex: Female

DRUGS (7)
  1. AZULFIDINE EN-TABS [Suspect]
     Indication: RHEUMATOID ARTHRITIS
     Route: 048
     Dates: start: 20070101, end: 20080304
  2. SEIHAITOU [Suspect]
     Route: 048
  3. PREDONINE [Suspect]
  4. LOSARTAN POTASSIUM AND HYDROCHLOROTHIAZIDE [Suspect]
     Route: 048
  5. MINOMYCIN [Suspect]
     Dates: start: 20070101, end: 20080304
  6. RIMATIL [Concomitant]
     Route: 048
     Dates: start: 20070101, end: 20080304
  7. RIMATIL [Concomitant]
     Route: 048

REACTIONS (1)
  - PNEUMONIA [None]
